FAERS Safety Report 8217159-0 (Version None)
Quarter: 2012Q1

REPORT INFORMATION
  Report Type: 
  Country: None (occurrence: None)
  Receive Date: 20120319
  Receipt Date: 20120314
  Transmission Date: 20120608
  Serious: No
  Sender: FDA-Public Use
  Company Number: US-BIOGENIDEC-2012BI009309

PATIENT
  Age: 31 Year
  Sex: Male

DRUGS (1)
  1. TYSABRI [Suspect]
     Indication: MULTIPLE SCLEROSIS
     Route: 042
     Dates: start: 20081212, end: 20111201

REACTIONS (3)
  - SENSATION OF PRESSURE [None]
  - ABNORMAL SENSATION IN EYE [None]
  - MUSCULOSKELETAL DISCOMFORT [None]
